FAERS Safety Report 4730052-0 (Version None)
Quarter: 2005Q3

REPORT INFORMATION
  Report Type: 
  Country: None (occurrence: None)
  Receive Date: 20050801
  Receipt Date: 20050720
  Transmission Date: 20060218
  Serious: Yes (Hospitalization)
  Sender: FDA-Public Use
  Company Number: JP-JNJFOC-20040201531

PATIENT
  Sex: Female
  Weight: 50 kg

DRUGS (9)
  1. REMICADE [Suspect]
     Route: 041
     Dates: start: 20031104
  2. REMICADE [Suspect]
     Indication: RHEUMATOID ARTHRITIS
     Route: 041
     Dates: start: 20031104
  3. RHEUMATREX [Suspect]
     Indication: RHEUMATOID ARTHRITIS
     Route: 065
     Dates: start: 20000610
  4. RUMATIL [Concomitant]
     Route: 048
  5. VOLTAREN [Concomitant]
     Route: 054
  6. PROTECADINE [Concomitant]
     Route: 048
  7. RISCHIL [Concomitant]
     Route: 048
     Dates: start: 19980820
  8. BORTAL [Concomitant]
     Route: 054
     Dates: start: 19970610
  9. FUROTEKASON [Concomitant]
     Route: 048
     Dates: start: 20001010

REACTIONS (6)
  - ANAEMIA [None]
  - DISSEMINATED TUBERCULOSIS [None]
  - LYMPH NODE TUBERCULOSIS [None]
  - PNEUMONIA [None]
  - TUBERCULOMA OF CENTRAL NERVOUS SYSTEM [None]
  - TUBERCULOSIS [None]
